FAERS Safety Report 21206090 (Version 1)
Quarter: 2022Q3

REPORT INFORMATION
  Report Type: Spontaneous
  Country: US (occurrence: US)
  Receive Date: 20220812
  Receipt Date: 20220812
  Transmission Date: 20221026
  Serious: Yes (Death, Hospitalization, Other)
  Sender: FDA-Public Use
  Company Number: US-SA-2022SA330308

PATIENT
  Age: 77 Year
  Sex: Male
  Weight: 85.5 kg

DRUGS (20)
  1. DOCETAXEL [Suspect]
     Active Substance: DOCETAXEL
     Indication: Neoplasm
     Dosage: UNK; (60 MG/M2,1 IN 3 WK)
     Route: 042
     Dates: start: 20220215, end: 20220719
  2. MIRZOTAMAB CLEZUTOCLAX [Suspect]
     Active Substance: MIRZOTAMAB CLEZUTOCLAX
     Indication: Neoplasm
     Dosage: UNK; (16 MG/KG,1 IN 3 WK) (16 MG/KG,1 IN-2)
     Route: 042
     Dates: start: 20220215, end: 20220719
  3. APIXABAN [Concomitant]
     Active Substance: APIXABAN
     Indication: Pulmonary embolism
     Dosage: 5 MG, BID
     Route: 048
     Dates: start: 20210205
  4. ASPIRIN [Concomitant]
     Active Substance: ASPIRIN
     Dosage: 81 MG, QD
     Route: 048
     Dates: start: 2012
  5. PREDNISONE [Concomitant]
     Active Substance: PREDNISONE
  6. VANCOMYCIN [Concomitant]
     Active Substance: VANCOMYCIN
  7. ZOSYN [Concomitant]
     Active Substance: PIPERACILLIN SODIUM\TAZOBACTAM SODIUM
  8. BUMEX [Concomitant]
     Active Substance: BUMETANIDE
  9. ATORVASTATIN [Concomitant]
     Active Substance: ATORVASTATIN
     Indication: Hyperlipidaemia
     Dosage: 40 MG, QD
     Route: 048
     Dates: start: 2012
  10. CENTRUM SILVER [ASCORBIC ACID;BETACAROTENE;BIOTIN;CALCIUM PHOSPHATE;CH [Concomitant]
     Indication: Vitamin supplementation
     Dosage: 1 DF, QD
     Route: 048
     Dates: start: 2012
  11. FISH OIL [Concomitant]
     Active Substance: FISH OIL
     Dosage: 1 DF, QD; 1 SOFTGELS
     Route: 048
     Dates: start: 2012
  12. PANTOPRAZOLE [Concomitant]
     Active Substance: PANTOPRAZOLE
     Indication: Gastrooesophageal reflux disease
     Dosage: 40 MG, QD
     Route: 048
     Dates: start: 2012
  13. MINERALS\VITAMINS [Concomitant]
     Active Substance: MINERALS\VITAMINS
     Indication: Glaucoma
     Dosage: 2 DF, QD; 1 SOFTGEL
     Route: 048
     Dates: start: 2018
  14. DOCUSATE [Concomitant]
     Active Substance: DOCUSATE
     Indication: Constipation
     Dosage: 100 MG, QD
     Route: 048
     Dates: start: 2012
  15. DEXAMETHASONE [Concomitant]
     Active Substance: DEXAMETHASONE
     Indication: Premedication
     Dosage: BID DAY BEFORE + AFTER, QD DAY OF (8 MG)
     Route: 048
     Dates: start: 20220214
  16. DEXAMETHASONE [Concomitant]
     Active Substance: DEXAMETHASONE
     Dosage: 8 MG, Q3W
     Route: 042
     Dates: start: 20220215
  17. ONDANSETRON [Concomitant]
     Active Substance: ONDANSETRON
     Indication: Premedication
     Dosage: 8 MG, Q3W
     Route: 042
     Dates: start: 20220215
  18. NYSTATIN [Concomitant]
     Active Substance: NYSTATIN
     Indication: Fungal infection
     Dosage: UNK UNK, QD; 2 IN 1 D
     Route: 061
     Dates: start: 20220516
  19. OXYCODONE [Concomitant]
     Active Substance: OXYCODONE
     Indication: Chest pain
     Dosage: 5 MG, PRN; 5 MG,1 IN 8 HR
     Route: 048
     Dates: start: 20220517
  20. METOPROLOL [Concomitant]
     Active Substance: METOPROLOL
     Indication: Hypertension
     Dosage: 25 MG, QD; EVERY MORNING
     Route: 048
     Dates: start: 20220712

REACTIONS (6)
  - Disease progression [Fatal]
  - Hypoxia [Recovering/Resolving]
  - Tachypnoea [Recovering/Resolving]
  - Rhonchi [Unknown]
  - Pneumonitis [Unknown]
  - Dyspnoea [Recovering/Resolving]

NARRATIVE: CASE EVENT DATE: 20220730
